FAERS Safety Report 13429684 (Version 4)
Quarter: 2017Q2

REPORT INFORMATION
  Report Type: Report from Study
  Country: None (occurrence: CO)
  Receive Date: 20170412
  Receipt Date: 20170629
  Transmission Date: 20170830
  Serious: Yes (Hospitalization, Other)
  Sender: FDA-Public Use
  Company Number: CO-ABBVIE-17P-036-1917217-00

PATIENT
  Age: 65 Year
  Sex: Male
  Weight: 60 kg

DRUGS (1)
  1. HUMIRA [Suspect]
     Active Substance: ADALIMUMAB
     Indication: PSORIATIC ARTHROPATHY
     Route: 058
     Dates: start: 20170123, end: 20170209

REACTIONS (5)
  - Vomiting [Recovered/Resolved]
  - Dermatomyositis [Unknown]
  - Dermatomyositis [Recovered/Resolved]
  - Gastrostomy [Unknown]
  - Hypotonia [Recovered/Resolved]

NARRATIVE: CASE EVENT DATE: 2017
